FAERS Safety Report 6727985-2 (Version None)
Quarter: 2010Q2

REPORT INFORMATION
  Report Type: 
  Country: None (occurrence: None)
  Receive Date: 20100512
  Receipt Date: 20100429
  Transmission Date: 20101027
  Serious: Yes (Hospitalization)
  Sender: FDA-Public Use
  Company Number: US-000129

PATIENT
  Age: 31 Year
  Sex: Male

DRUGS (1)
  1. KUVAN [Suspect]
     Indication: PHENYLKETONURIA
     Dosage: (1500 MG QD ORAL)
     Route: 048
     Dates: start: 20100301, end: 20100309

REACTIONS (9)
  - CHILLS [None]
  - DYSPNOEA [None]
  - HEADACHE [None]
  - INFECTION [None]
  - NAUSEA [None]
  - OROPHARYNGEAL PAIN [None]
  - RESPIRATORY DISTRESS [None]
  - TREMOR [None]
  - VOMITING [None]
